FAERS Safety Report 5933984-0 (Version None)
Quarter: 2008Q4

REPORT INFORMATION
  Report Type: 
  Country: None (occurrence: None)
  Receive Date: 20081028
  Receipt Date: 20081028
  Transmission Date: 20090506
  Serious: Yes (Other)
  Sender: FDA-Public Use
  Company Number: None

PATIENT
  Sex: Male
  Weight: 56 kg

DRUGS (1)
  1. ISOTRETINOIN [Suspect]
     Indication: ACNE
     Dosage: 1GR DAILY BUCCAL
     Route: 002
     Dates: start: 20030103, end: 20030603

REACTIONS (3)
  - DRY EYE [None]
  - LIP DRY [None]
  - NASAL DRYNESS [None]
